FAERS Safety Report 24917315 (Version 1)
Quarter: 2025Q1

REPORT INFORMATION
  Report Type: Spontaneous
  Country: US (occurrence: None)
  Receive Date: 20250202
  Receipt Date: 20250202
  Transmission Date: 20250409
  Serious: Yes (Other)
  Sender: FDA-CTU
  Company Number: None

PATIENT
  Age: 12 Year
  Sex: Female
  Weight: 51.75 kg

DRUGS (1)
  1. RINVOQ [Suspect]
     Active Substance: UPADACITINIB
     Indication: Dermatitis atopic
     Dates: start: 20240801, end: 20241130

REACTIONS (12)
  - Drug ineffective [None]
  - Hypersensitivity [None]
  - Urinary tract infection [None]
  - Therapy cessation [None]
  - Urticaria [None]
  - Angioedema [None]
  - Erythema [None]
  - Dermatitis [None]
  - Pruritus [None]
  - Eczema [None]
  - Quality of life decreased [None]
  - Loss of personal independence in daily activities [None]

NARRATIVE: CASE EVENT DATE: 20241219
